FAERS Safety Report 9536908 (Version 1)
Quarter: 2013Q3

REPORT INFORMATION
  Report Type: Spontaneous
  Country: US (occurrence: None)
  Receive Date: 20130918
  Receipt Date: 20130918
  Transmission Date: 20140515
  Serious: Yes (Life-Threatening)
  Sender: FDA-Public Use
  Company Number: None

PATIENT
  Age: 79 Year
  Sex: Male
  Weight: 87.2 kg

DRUGS (10)
  1. SIMVASTATIN [Suspect]
     Indication: HYPERCHOLESTEROLAEMIA
     Route: 048
     Dates: end: 20110624
  2. AMIODARONE [Concomitant]
  3. ASPIRIN [Concomitant]
  4. CARVEDILOL [Concomitant]
  5. DOCUSATE [Concomitant]
  6. ALDACTONE [Concomitant]
  7. MULTIVITAMIN [Concomitant]
  8. TRAZADONE [Concomitant]
  9. SILDENAFIL [Concomitant]
  10. ALBUTEROL [Concomitant]

REACTIONS (1)
  - Rhabdomyolysis [None]
